FAERS Safety Report 4423184-8 (Version None)
Quarter: 2004Q3

REPORT INFORMATION
  Report Type: 
  Country: None (occurrence: None)
  Receive Date: 20040809
  Receipt Date: 20040726
  Transmission Date: 20050211
  Serious: Yes (Death, Hospitalization, Other)
  Sender: FDA-Public Use
  Company Number: 2004050992

PATIENT
  Age: 67 Year
  Sex: Female

DRUGS (3)
  1. CITALOR (ATORVASTATIN) [Suspect]
     Indication: DYSLIPIDAEMIA
     Dosage: 10 MG (10 MG, 1 IN 1 D), ORAL
     Route: 048
     Dates: start: 20001201
  2. ATENOLOL [Concomitant]
  3. VASERETIC [Concomitant]

REACTIONS (3)
  - BILE DUCT OBSTRUCTION [None]
  - PANCREATIC CARCINOMA [None]
  - WEIGHT DECREASED [None]
